FAERS Safety Report 26078246 (Version 2)
Quarter: 2025Q4

REPORT INFORMATION
  Report Type: Spontaneous
  Country: JP (occurrence: JP)
  Receive Date: 20251122
  Receipt Date: 20251227
  Transmission Date: 20260117
  Serious: Yes (Death, Life-Threatening)
  Sender: SERVIER
  Company Number: JP-SERVIER-S25016830

PATIENT

DRUGS (2)
  1. ONCASPAR [Suspect]
     Active Substance: PEGASPARGASE
     Indication: T-cell type acute leukaemia
     Dosage: 50% REDUCED-DOSE
     Route: 065
  2. VINCRISTINE SULFATE [Concomitant]
     Active Substance: VINCRISTINE SULFATE
     Indication: T-cell type acute leukaemia
     Dosage: 50% REDUCED-DOSE
     Route: 065

REACTIONS (4)
  - Hepatic function abnormal [Fatal]
  - Pancreatitis acute [Fatal]
  - Pleural effusion [Fatal]
  - Underdose [Recovered/Resolved]
